FAERS Safety Report 26141469 (Version 1)
Quarter: 2025Q4

REPORT INFORMATION
  Report Type: Spontaneous
  Country: EU (occurrence: EU)
  Receive Date: 20251210
  Receipt Date: 20251210
  Transmission Date: 20260118
  Serious: Yes (Hospitalization)
  Sender: EISAI
  Company Number: EU-Eisai-EC-2025-201380

PATIENT
  Age: 70 Year
  Sex: Male
  Weight: 110 kg

DRUGS (3)
  1. LEQEMBI [Suspect]
     Active Substance: LECANEMAB-IRMB
     Indication: Dementia Alzheimer^s type
     Dosage: DOSE UNKNOWN. LOT NUMBER: 8145912 (2X5ML) AND 8145914 (2 ML)
     Route: 042
     Dates: start: 20250922
  2. LEQEMBI [Suspect]
     Active Substance: LECANEMAB-IRMB
     Dosage: DOSE UNKNOWN. LOT NUMBER: 8145912 (2X5ML) AND 8145914 (2 ML)
     Route: 042
     Dates: start: 20251106, end: 20251106
  3. ASPIRIN [Concomitant]
     Active Substance: ASPIRIN
     Indication: Product used for unknown indication
     Dosage: DOSE AND FREQUENCY UNKNOWN (100 MG OR LESS)

REACTIONS (4)
  - Amyloid related imaging abnormality-microhaemorrhages and haemosiderin deposits [Recovering/Resolving]
  - Amyloid related imaging abnormality-oedema/effusion [Recovering/Resolving]
  - Fall [Recovering/Resolving]
  - Femoral neck fracture [Recovering/Resolving]

NARRATIVE: CASE EVENT DATE: 20251101
